FAERS Safety Report 7802890 (Version 3)
Quarter: 2013Q4

REPORT INFORMATION
  Report Type: Spontaneous
  Country: GR (occurrence: GR)
  Receive Date: 20110207
  Receipt Date: 20131015
  Transmission Date: 20140711
  Serious: Yes (Life-Threatening, Hospitalization, Other)
  Sender: FDA-Public Use
  Company Number: GR-PFIZER INC-2011016308

PATIENT
  Age: 9 Year
  Sex: Male
  Weight: 35 kg

DRUGS (1)
  1. SOLU-MEDROL [Suspect]
     Indication: ASTHMATIC CRISIS
     Dosage: 40 MG, AS NEEDED
     Route: 042
     Dates: start: 201001

REACTIONS (2)
  - Anaphylactic reaction [Recovered/Resolved]
  - Reaction to drug excipients [Recovered/Resolved]
